FAERS Safety Report 8549886-X (Version None)
Quarter: 2012Q3

REPORT INFORMATION
  Report Type: 
  Country: None (occurrence: None)
  Receive Date: 20120730
  Receipt Date: 20111130
  Transmission Date: 20120928
  Serious: No
  Sender: FDA-Public Use
  Company Number: US-GLAXOSMITHKLINE-A0956056A

PATIENT
  Sex: Female

DRUGS (2)
  1. IBUPROFEN [Concomitant]
  2. IMITREX [Suspect]
     Indication: MIGRAINE
     Dosage: 50MG AS REQUIRED
     Route: 048

REACTIONS (4)
  - LOOSE TOOTH [None]
  - HYPOGEUSIA [None]
  - TOOTH DISORDER [None]
  - HYPOSMIA [None]
